FAERS Safety Report 11141325 (Version 1)
Quarter: 2015Q2

REPORT INFORMATION
  Report Type: Spontaneous
  Country: US (occurrence: None)
  Receive Date: 20150526
  Receipt Date: 20150526
  Transmission Date: 20150821
  Serious: No
  Sender: FDA-Public Use
  Company Number: None

PATIENT
  Age: 60 Year
  Sex: Female
  Weight: 54.43 kg

DRUGS (10)
  1. VITAMIN D3 [Concomitant]
     Active Substance: CHOLECALCIFEROL
  2. FISH OIL [Concomitant]
     Active Substance: FISH OIL
  3. HYDROCORTISONE. [Suspect]
     Active Substance: HYDROCORTISONE
     Indication: ADRENAL DISORDER
     Dosage: 2 AND 1/2, 5MG PILLS PER DAY ONCE DAILY TAKEN BY MOUTH
     Route: 048
     Dates: start: 20150514, end: 20150521
  4. CORTEF [Concomitant]
     Active Substance: HYDROCORTISONE
  5. HYDROCORTISONE. [Suspect]
     Active Substance: HYDROCORTISONE
     Indication: HYPOTHYROIDISM
     Dosage: 2 AND 1/2, 5MG PILLS PER DAY ONCE DAILY TAKEN BY MOUTH
     Route: 048
     Dates: start: 20150514, end: 20150521
  6. TIROSINT [Concomitant]
     Active Substance: LEVOTHYROXINE SODIUM
  7. PROMETRIUM [Concomitant]
     Active Substance: PROGESTERONE
  8. VITAMIN B COMPLEX [Concomitant]
     Active Substance: CYANOCOBALAMIN\DEXPANTHENOL\NIACINAMIDE\PYRIDOXINE HYDROCHLORIDE\RIBOFLAVIN 5^-PHOSPHATE SODIUM\THIAMINE HYDROCHLORIDE\VITAMIN B COMPLEX
  9. VIVELLE DOT [Concomitant]
     Active Substance: ESTRADIOL
  10. CALCIUM [Concomitant]
     Active Substance: CALCIUM

REACTIONS (5)
  - Arthralgia [None]
  - Drug effect decreased [None]
  - Nausea [None]
  - Heart rate increased [None]
  - Product substitution issue [None]

NARRATIVE: CASE EVENT DATE: 20150514
